FAERS Safety Report 21435884 (Version 2)
Quarter: 2022Q4

REPORT INFORMATION
  Report Type: Report from Study
  Country: IT (occurrence: IT)
  Receive Date: 20221010
  Receipt Date: 20221101
  Transmission Date: 20230113
  Serious: Yes (Hospitalization)
  Sender: FDA-Public Use
  Company Number: IT-EXELIXIS-XL18422056672

PATIENT

DRUGS (9)
  1. CABOZANTINIB [Suspect]
     Active Substance: CABOZANTINIB
     Indication: Transitional cell carcinoma
     Dosage: 40 MG
     Route: 048
     Dates: start: 20201006, end: 20201201
  2. CABOZANTINIB [Suspect]
     Active Substance: CABOZANTINIB
     Dosage: 20 MG
     Route: 048
     Dates: start: 20201208, end: 20220719
  3. DURVALUMAB [Suspect]
     Active Substance: DURVALUMAB
     Indication: Transitional cell carcinoma
     Dosage: 1500 MG
     Route: 042
     Dates: start: 20201006, end: 20220719
  4. ENALAPRIL MALEATE\LERCANIDIPINE HYDROCHLORIDE [Concomitant]
     Active Substance: ENALAPRIL MALEATE\LERCANIDIPINE HYDROCHLORIDE
  5. LERCANIDIPINE HYDROCHLORIDE [Concomitant]
     Active Substance: LERCANIDIPINE HYDROCHLORIDE
  6. Cardioasa [Concomitant]
     Indication: Arteriosclerosis
  7. RIFAXIMIN [Concomitant]
     Active Substance: RIFAXIMIN
  8. METFORMIN HYDROCHLORIDE [Concomitant]
     Active Substance: METFORMIN HYDROCHLORIDE
  9. CALCIUM [Concomitant]
     Active Substance: CALCIUM

REACTIONS (3)
  - Pyrexia [Not Recovered/Not Resolved]
  - Anaemia [Not Recovered/Not Resolved]
  - Neutropenia [Not Recovered/Not Resolved]

NARRATIVE: CASE EVENT DATE: 20220813
